FAERS Safety Report 22138233 (Version 2)
Quarter: 2023Q1

REPORT INFORMATION
  Report Type: Spontaneous
  Country: CN (occurrence: CN)
  Receive Date: 20230325
  Receipt Date: 20230330
  Transmission Date: 20230418
  Serious: Yes (Other)
  Sender: FDA-Public Use
  Company Number: None

PATIENT
  Age: 45 Year
  Sex: Female
  Weight: 56 kg

DRUGS (16)
  1. CYCLOPHOSPHAMIDE [Suspect]
     Active Substance: CYCLOPHOSPHAMIDE
     Indication: Breast cancer female
     Dosage: AT 9:21, AS A PART OF EC-T REGIMEN 850 MG, QD DILUTED WITH 100 ML SODIUM CHLORIDE,FOURTH CHEMOTHERAP
     Route: 041
     Dates: start: 20230308, end: 20230308
  2. CYCLOPHOSPHAMIDE [Suspect]
     Active Substance: CYCLOPHOSPHAMIDE
     Indication: Chemotherapy
  3. SODIUM CHLORIDE [Suspect]
     Active Substance: SODIUM CHLORIDE
     Indication: Medication dilution
     Dosage: AT 9:21, 100 ML, QD USED TO DILUTE 140 MG EPIRUBICIN, FOURTH CHEMOTHERAPY
     Route: 041
     Dates: start: 20230308, end: 20230308
  4. EPIRUBICIN [Suspect]
     Active Substance: EPIRUBICIN
     Indication: Breast cancer female
     Dosage: AT 9:21, AS A PART OF EC-T REGIMEN 140 MG, QD DILUTED WITH 100 ML SODIUM CHLORIDE, FOURTH CHEMOTHERA
     Route: 041
     Dates: start: 20230308, end: 20230308
  5. EPIRUBICIN [Suspect]
     Active Substance: EPIRUBICIN
     Indication: Chemotherapy
  6. SODIUM CHLORIDE [Suspect]
     Active Substance: SODIUM CHLORIDE
     Indication: Breast cancer female
     Dosage: AT 9: 21, 100 ML QD, USED TO DILUTE 850 MG CYCLOPHOSPHAMIDE
     Route: 041
     Dates: start: 20230308, end: 20230308
  7. SODIUM CHLORIDE [Suspect]
     Active Substance: SODIUM CHLORIDE
     Indication: Chemotherapy
     Dosage: UNK
     Route: 041
     Dates: start: 20230308, end: 20230308
  8. TAXOL [Suspect]
     Active Substance: PACLITAXEL
     Indication: Breast cancer female
     Dosage: AS A PART OF EC-T REGIMEN
     Route: 065
     Dates: start: 20230308, end: 20230308
  9. TAXOL [Suspect]
     Active Substance: PACLITAXEL
     Indication: Chemotherapy
  10. OMEPRAZOLE SODIUM [Concomitant]
     Active Substance: OMEPRAZOLE SODIUM
     Indication: Prophylaxis
     Dosage: 40 MG, USED TO DILUTE 100 ML SODIUM CHLORIDE AT 8.47
     Route: 065
     Dates: start: 20230308, end: 20230308
  11. SODIUM CHLORIDE [Concomitant]
     Active Substance: SODIUM CHLORIDE
     Indication: Medication dilution
     Dosage: 100ML, DILUTED WITH 40 MG OMEPRAZOLE SODIUM, AT 8.47
     Route: 065
     Dates: start: 20230308
  12. SODIUM CHLORIDE [Concomitant]
     Active Substance: SODIUM CHLORIDE
     Dosage: 5ML, USED TO DILUTE 5 MG TROPISETRON AT 8.47
     Route: 065
     Dates: start: 20230308
  13. SODIUM CHLORIDE [Concomitant]
     Active Substance: SODIUM CHLORIDE
     Dosage: AFTER CHEMOTHERAPY, 5ML, USED TO DILUTE 5 MG TROPISETRON
     Route: 065
     Dates: start: 20230308
  14. TROPISETRON [Concomitant]
     Active Substance: TROPISETRON
     Indication: Prophylaxis of nausea and vomiting
     Dosage: 5 MG, USED TO DILUTE 5 ML SODIUM CHLORIDE, AT 8.47
     Route: 065
     Dates: start: 20230308
  15. TROPISETRON [Concomitant]
     Active Substance: TROPISETRON
     Dosage: AFTER CHEMOTHERAPY, 5 MG, USED TO DILUTE 5 ML SODIUM CHLORIDE
     Route: 065
     Dates: start: 20230308
  16. DEXAMETHASONE [Concomitant]
     Active Substance: DEXAMETHASONE
     Indication: Prophylaxis
     Dosage: 5 MG
     Route: 042
     Dates: start: 20230308

REACTIONS (7)
  - Initial insomnia [Recovering/Resolving]
  - Vomiting [Recovered/Resolved]
  - Nausea [Recovering/Resolving]
  - Discomfort [Unknown]
  - Gastrointestinal disorder [Unknown]
  - Regurgitation [Unknown]
  - Dyspepsia [Unknown]

NARRATIVE: CASE EVENT DATE: 20230308
